FAERS Safety Report 7236945-7 (Version None)
Quarter: 2011Q1

REPORT INFORMATION
  Report Type: 
  Country: None (occurrence: None)
  Receive Date: 20110121
  Receipt Date: 20110111
  Transmission Date: 20110831
  Serious: Yes (Other)
  Sender: FDA-Public Use
  Company Number: US-BIOGENIDEC-2010BI039506

PATIENT
  Age: 65 Year
  Sex: Female

DRUGS (3)
  1. TYSABRI [Suspect]
     Indication: MULTIPLE SCLEROSIS
     Route: 042
     Dates: start: 20100407, end: 20100407
  2. TYSABRI [Suspect]
     Route: 042
     Dates: start: 20101005
  3. AVONEX [Concomitant]
     Indication: MULTIPLE SCLEROSIS
     Route: 030
     Dates: start: 20030906

REACTIONS (3)
  - DRUG EFFECT DECREASED [None]
  - PANIC ATTACK [None]
  - CHRONIC LYMPHOCYTIC LEUKAEMIA [None]
